FAERS Safety Report 15320417 (Version 2)
Quarter: 2018Q4

REPORT INFORMATION
  Report Type: Report from Study
  Country: CN (occurrence: CN)
  Receive Date: 20180827
  Receipt Date: 20181017
  Transmission Date: 20190204
  Serious: Yes (Other)
  Sender: FDA-Public Use
  Company Number: CN-ROCHE-1863789

PATIENT
  Sex: Female
  Weight: 45 kg

DRUGS (1)
  1. AVASTIN [Suspect]
     Active Substance: BEVACIZUMAB
     Indication: COLON CANCER
     Route: 041
     Dates: start: 20160719

REACTIONS (8)
  - Transaminases increased [Unknown]
  - Epistaxis [Unknown]
  - Ill-defined disorder [Unknown]
  - Pharyngeal inflammation [Unknown]
  - Carcinoembryonic antigen increased [Unknown]
  - Mood altered [Unknown]
  - White blood cell count decreased [Unknown]
  - Intestinal obstruction [Unknown]
